FAERS Safety Report 10288832 (Version 2)
Quarter: 2014Q3

REPORT INFORMATION
  Report Type: Spontaneous
  Country: US (occurrence: US)
  Receive Date: 20140709
  Receipt Date: 20140709
  Transmission Date: 20150326
  Serious: No
  Sender: FDA-Public Use
  Company Number: US-GILEAD-2013-0084511

PATIENT
  Sex: Female

DRUGS (5)
  1. LETAIRIS [Suspect]
     Active Substance: AMBRISENTAN
     Indication: SCLERODERMA
  2. LEVAQUIN [Concomitant]
     Active Substance: LEVOFLOXACIN
  3. LETAIRIS [Suspect]
     Active Substance: AMBRISENTAN
     Indication: PULMONARY HYPERTENSION
     Dosage: 10 MG, QD
     Route: 048
     Dates: start: 20100309
  4. TYVASO [Concomitant]
     Active Substance: TREPROSTINIL
  5. REVATIO [Concomitant]
     Active Substance: SILDENAFIL CITRATE

REACTIONS (8)
  - Respiratory tract infection [Unknown]
  - Sinusitis [Unknown]
  - Cough [Not Recovered/Not Resolved]
  - Headache [Recovering/Resolving]
  - Throat irritation [Recovering/Resolving]
  - Paranasal sinus hypersecretion [Unknown]
  - Nausea [Unknown]
  - Diarrhoea [Unknown]
